FAERS Safety Report 11629487 (Version 4)
Quarter: 2015Q4

REPORT INFORMATION
  Report Type: Spontaneous
  Country: US (occurrence: US)
  Receive Date: 20151014
  Receipt Date: 20151029
  Transmission Date: 20160304
  Serious: Yes (Other)
  Sender: FDA-Public Use
  Company Number: US-SA-2015SA159859

PATIENT
  Age: 59 Year
  Sex: Female

DRUGS (12)
  1. LANTUS SOLOSTAR [Suspect]
     Active Substance: INSULIN GLARGINE
     Indication: DIABETES MELLITUS
     Dosage: START DATE:5-6 YEARS DOSE:30 UNIT(S)
     Route: 065
  2. LANTUS SOLOSTAR [Suspect]
     Active Substance: INSULIN GLARGINE
     Indication: DIABETES MELLITUS
     Dosage: START DATE:5-6 YEARS DOSE:30 UNIT(S)
     Route: 065
  3. LANTUS SOLOSTAR [Suspect]
     Active Substance: INSULIN GLARGINE
     Indication: DIABETES MELLITUS
     Dosage: START DATE:5-6 YEARS DOSE:30 UNIT(S)
     Route: 065
  4. LANTUS SOLOSTAR [Suspect]
     Active Substance: INSULIN GLARGINE
     Indication: DIABETES MELLITUS
     Dosage: START DATE:5-6 YEARS DOSE:30 UNIT(S)
     Route: 065
  5. NOVOLOG [Concomitant]
     Active Substance: INSULIN ASPART
  6. LANTUS SOLOSTAR [Suspect]
     Active Substance: INSULIN GLARGINE
     Indication: DIABETES MELLITUS
     Dosage: START DATE:5-6 YEARS DOSE:30 UNIT(S)
     Route: 065
  7. LANTUS SOLOSTAR [Suspect]
     Active Substance: INSULIN GLARGINE
     Indication: DIABETES MELLITUS
     Dosage: START DATE:5-6 YEARS DOSE:30 UNIT(S)
     Route: 065
  8. LANTUS SOLOSTAR [Suspect]
     Active Substance: INSULIN GLARGINE
     Indication: DIABETES MELLITUS
     Dosage: START DATE:5-6 YEARS DOSE:30 UNIT(S)
     Route: 065
  9. SOLOSTAR [Concomitant]
     Active Substance: DEVICE
  10. LANTUS SOLOSTAR [Suspect]
     Active Substance: INSULIN GLARGINE
     Indication: DIABETES MELLITUS
     Dosage: START DATE:5-6 YEARS DOSE:30 UNIT(S)
     Route: 065
  11. LANTUS SOLOSTAR [Suspect]
     Active Substance: INSULIN GLARGINE
     Indication: DIABETES MELLITUS
     Dosage: START DATE:5-6 YEARS DOSE:30 UNIT(S)
     Route: 065
  12. LANTUS SOLOSTAR [Suspect]
     Active Substance: INSULIN GLARGINE
     Indication: DIABETES MELLITUS
     Dosage: START DATE:5-6 YEARS DOSE:30 UNIT(S)
     Route: 065

REACTIONS (4)
  - Injection site pain [Unknown]
  - Drug ineffective [Unknown]
  - Cerebrovascular accident [Unknown]
  - Drug administration error [Unknown]
